FAERS Safety Report 5113232-4 (Version None)
Quarter: 2006Q3

REPORT INFORMATION
  Report Type: 
  Country: None (occurrence: None)
  Receive Date: 20060922
  Receipt Date: 20060814
  Transmission Date: 20061208
  Serious: Yes (Hospitalization)
  Sender: FDA-Public Use
  Company Number: US-MERCK-0608USA02995

PATIENT
  Age: 72 Year
  Sex: Male

DRUGS (5)
  1. ZOCOR [Suspect]
     Indication: LIPIDS INCREASED
     Route: 048
     Dates: start: 20050101
  2. VALSARTAN [Concomitant]
     Route: 065
  3. METOPROLOL [Concomitant]
     Route: 065
  4. FUROSEMIDE [Concomitant]
     Route: 065
  5. METOLAZONE [Concomitant]
     Route: 065

REACTIONS (3)
  - HEPATIC ENZYME INCREASED [None]
  - INTESTINAL DILATATION [None]
  - INTESTINAL FUNCTIONAL DISORDER [None]
